FAERS Safety Report 25302764 (Version 1)
Quarter: 2025Q2

REPORT INFORMATION
  Report Type: Spontaneous
  Country: US (occurrence: US)
  Receive Date: 20250512
  Receipt Date: 20250512
  Transmission Date: 20250717
  Serious: No
  Sender: ABBVIE
  Company Number: US-ABBVIE-6267804

PATIENT
  Age: 35 Year
  Sex: Female

DRUGS (2)
  1. SKYRIZI [Suspect]
     Active Substance: RISANKIZUMAB-RZAA
     Indication: Crohn^s disease
     Route: 058
  2. SKYRIZI [Suspect]
     Active Substance: RISANKIZUMAB-RZAA
     Indication: Crohn^s disease
     Route: 042

REACTIONS (13)
  - Defaecation urgency [Unknown]
  - Gastrointestinal disorder [Unknown]
  - Pseudopolyposis [Unknown]
  - Large intestinal ulcer [Unknown]
  - Haematochezia [Unknown]
  - Skin reaction [Unknown]
  - Multiple allergies [Unknown]
  - Mucous stools [Unknown]
  - Stress [Unknown]
  - Polyarthritis [Unknown]
  - Gastrointestinal inflammation [Unknown]
  - Muscle spasms [Unknown]
  - Rectal ulcer [Unknown]

NARRATIVE: CASE EVENT DATE: 20240101
